FAERS Safety Report 20916767 (Version 1)
Quarter: 2022Q2

REPORT INFORMATION
  Report Type: Spontaneous
  Country: DE (occurrence: DE)
  Receive Date: 20220605
  Receipt Date: 20220605
  Transmission Date: 20220720
  Serious: Yes (Death, Life-Threatening, Hospitalization, Other)
  Sender: FDA-Public Use
  Company Number: None

PATIENT
  Age: 24 Year
  Sex: Female
  Weight: 90 kg

DRUGS (1)
  1. RISPERIDONE [Suspect]
     Active Substance: RISPERIDONE
     Indication: Product used for unknown indication
     Dosage: UNK (SPRITZE) (SOLUTION FOR INJECTION)
     Route: 042
     Dates: start: 2019

REACTIONS (11)
  - Shunt occlusion [Fatal]
  - Faecal vomiting [Fatal]
  - Renal impairment [Fatal]
  - Haematemesis [Fatal]
  - Hepatic function abnormal [Fatal]
  - Dermal cyst [Fatal]
  - Cerebral cyst [Fatal]
  - Drug tolerance [Fatal]
  - Muscular weakness [Fatal]
  - Breast cyst [Fatal]
  - Weight increased [Fatal]

NARRATIVE: CASE EVENT DATE: 20191115
